FAERS Safety Report 7815456-1 (Version None)
Quarter: 2011Q4

REPORT INFORMATION
  Report Type: 
  Country: None (occurrence: None)
  Receive Date: 20111014
  Receipt Date: 20111005
  Transmission Date: 20120403
  Serious: Yes (Other)
  Sender: FDA-Public Use
  Company Number: PHHY2011JP53705

PATIENT
  Sex: Female

DRUGS (1)
  1. ESTRADIOL AND NORETHINDRONE ACETATE [Suspect]
     Indication: OVARIAN FAILURE
     Dosage: UNK UKN, BIW
     Route: 062
     Dates: start: 20110509, end: 20110611

REACTIONS (3)
  - JOINT SWELLING [None]
  - HAEMARTHROSIS [None]
  - ARTHRALGIA [None]
